FAERS Safety Report 5203463-7 (Version None)
Quarter: 2007Q1

REPORT INFORMATION
  Report Type: 
  Country: None (occurrence: None)
  Receive Date: 20070110
  Receipt Date: 20070102
  Transmission Date: 20070707
  Serious: Yes (Hospitalization)
  Sender: FDA-Public Use
  Company Number: PHRM2007FR00450

PATIENT
  Age: 57 Year
  Sex: Male

DRUGS (3)
  1. RIFINAH [Suspect]
     Dosage: 2 DF PER DAY
     Route: 048
     Dates: start: 20061001
  2. NEORAL [Suspect]
     Indication: PSORIASIS
     Dosage: 300 MG/DAY
     Route: 048
  3. NEORAL [Suspect]
     Dosage: UNK, UNK
     Route: 048
     Dates: start: 20030701

REACTIONS (2)
  - PSORIASIS [None]
  - TOXIC SKIN ERUPTION [None]
